FAERS Safety Report 8103176-8 (Version None)
Quarter: 2011Q4

REPORT INFORMATION
  Report Type: 
  Country: None (occurrence: None)
  Receive Date: 20111222
  Receipt Date: 20110920
  Transmission Date: 20120403
  Serious: Yes (Death)
  Sender: FDA-Public Use
  Company Number: UTC-010432

PATIENT
  Age: 61 Year
  Sex: Female
  Weight: 64.54 kg

DRUGS (7)
  1. TYVASO [Suspect]
     Indication: PULMONARY HYPERTENSION
     Dosage: 72 MCG (18 MCG, 4 IN 1 D), INHALATION
     Route: 055
     Dates: start: 20110824
  2. TRACLEER [Concomitant]
  3. DIGOXIN [Concomitant]
  4. DIURETICS (DIURETICS) [Concomitant]
  5. PROCARDIA [Concomitant]
  6. REVATIO [Concomitant]
  7. PLAVIX [Concomitant]

REACTIONS (1)
  - RENAL FAILURE [None]
